FAERS Safety Report 17582012 (Version 1)
Quarter: 2020Q1

REPORT INFORMATION
  Report Type: Spontaneous
  Country: US (occurrence: US)
  Receive Date: 20200325
  Receipt Date: 20200325
  Transmission Date: 20200409
  Serious: Yes (Life-Threatening, Hospitalization, Other)
  Sender: FDA-Public Use
  Company Number: US-BRISTOL-MYERS SQUIBB COMPANY-BMS-2020-023290

PATIENT
  Age: 83 Year
  Sex: Female

DRUGS (1)
  1. WARFARIN SODIUM. [Suspect]
     Active Substance: WARFARIN SODIUM
     Indication: PRODUCT USED FOR UNKNOWN INDICATION
     Route: 065

REACTIONS (8)
  - Drug ineffective [Unknown]
  - Haemorrhage [Unknown]
  - Tooth disorder [Unknown]
  - Thrombosis [Unknown]
  - Pulmonary oedema [Unknown]
  - Ear infection [Unknown]
  - Clostridium difficile infection [Unknown]
  - Drug level fluctuating [Unknown]
